FAERS Safety Report 11090507 (Version 1)
Quarter: 2015Q2

REPORT INFORMATION
  Report Type: Spontaneous
  Country: US (occurrence: None)
  Receive Date: 20150504
  Receipt Date: 20150504
  Transmission Date: 20150821
  Serious: Yes (Life-Threatening)
  Sender: FDA-Public Use
  Company Number: None

PATIENT
  Age: 77 Year
  Sex: Male
  Weight: 72.58 kg

DRUGS (6)
  1. BREO ELLIPTA [Suspect]
     Active Substance: FLUTICASONE FUROATE\VILANTEROL TRIFENATATE
     Indication: ASTHMA
     Dosage: 1 PUFF PER DAY
     Route: 055
  2. PULMICORT TURBUHALER [Concomitant]
     Active Substance: BUDESONIDE
  3. FISH OIL [Concomitant]
     Active Substance: FISH OIL
  4. VITAMIN B12 [Concomitant]
     Active Substance: CYANOCOBALAMIN
  5. D3 [Concomitant]
     Active Substance: 25-HYDROXYCHOLECALCIFEROL, 5-TRANS-
  6. GLUCOSAMINE [Concomitant]
     Active Substance: GLUCOSAMINE

REACTIONS (5)
  - Headache [None]
  - Nausea [None]
  - Asthenia [None]
  - Dizziness [None]
  - Balance disorder [None]

NARRATIVE: CASE EVENT DATE: 20150327
